FAERS Safety Report 12854926 (Version 6)
Quarter: 2017Q2

REPORT INFORMATION
  Report Type: Report from Study
  Country: US (occurrence: US)
  Receive Date: 20161017
  Receipt Date: 20170403
  Transmission Date: 20170830
  Serious: Yes (Other)
  Sender: FDA-Public Use
  Company Number: PHEH2016US026399

PATIENT
  Age: 77 Year
  Sex: Male

DRUGS (1)
  1. ENTRESTO [Suspect]
     Active Substance: SACUBITRIL\VALSARTAN
     Indication: CARDIAC FAILURE
     Dosage: 50 MG, PRN
     Route: 048

REACTIONS (21)
  - Dyspnoea [Unknown]
  - Asthenia [Recovering/Resolving]
  - Rib fracture [Unknown]
  - Fall [Unknown]
  - Malaise [Unknown]
  - Weight fluctuation [Unknown]
  - Urinary incontinence [Unknown]
  - Mass [Unknown]
  - Cough [Unknown]
  - Hypotension [Unknown]
  - Swelling face [Recovered/Resolved]
  - Inappropriate schedule of drug administration [Unknown]
  - Respiratory rate increased [Unknown]
  - Spinal disorder [Unknown]
  - Chromaturia [Unknown]
  - Hypoaesthesia [Recovering/Resolving]
  - Sinus disorder [Unknown]
  - Road traffic accident [Unknown]
  - Chest discomfort [Unknown]
  - Fatigue [Recovering/Resolving]
  - Therapeutic response unexpected [Unknown]

NARRATIVE: CASE EVENT DATE: 20170201
